FAERS Safety Report 20063479 (Version 1)
Quarter: 2021Q4

REPORT INFORMATION
  Report Type: Spontaneous
  Country: GB (occurrence: GB)
  Receive Date: 20211112
  Receipt Date: 20211112
  Transmission Date: 20220303
  Serious: Yes (Life-Threatening, Hospitalization)
  Sender: FDA-Public Use
  Company Number: None

PATIENT
  Age: 7 Year
  Sex: Male
  Weight: 22.7 kg

DRUGS (22)
  1. AMLODIPINE [Suspect]
     Active Substance: AMLODIPINE BESYLATE
     Indication: Hypertension
     Dosage: 2.5MG OD - 4.5MG BD (TITRATED ACCORDING TO BLOOD PRESSURE)
     Route: 048
     Dates: start: 20211015
  2. AMLODIPINE [Suspect]
     Active Substance: AMLODIPINE BESYLATE
     Dosage: 2.5MG OD - 4.5MG BD (TITRATED ACCORDING TO BLOOD PRESSURE)
     Route: 048
     Dates: start: 20211031
  3. AMOXICILLIN\CLAVULANATE POTASSIUM [Suspect]
     Active Substance: AMOXICILLIN\CLAVULANATE POTASSIUM
     Indication: Postoperative wound infection
     Dosage: 680 MG, Q8H
     Route: 042
     Dates: start: 20211026, end: 20211027
  4. PIPERACILLIN AND TAZOBACTAM [Suspect]
     Active Substance: PIPERACILLIN SODIUM\TAZOBACTAM SODIUM
     Indication: Postoperative wound infection
     Dosage: 1874 MG, Q8H
     Route: 042
     Dates: start: 20211022, end: 20211024
  5. CEPHALEXIN [Suspect]
     Active Substance: CEPHALEXIN
     Indication: Postoperative wound infection
     Dosage: 250 MG, TDS
     Route: 048
     Dates: start: 20211024, end: 20211025
  6. FLUCLOXACILLIN [Suspect]
     Active Substance: FLUCLOXACILLIN
     Indication: Cellulitis
     Dosage: 1135 MG, Q6H
     Route: 042
     Dates: start: 20211027, end: 20211028
  7. CETIRIZINE [Concomitant]
     Active Substance: CETIRIZINE HYDROCHLORIDE
     Indication: Ill-defined disorder
     Dosage: UNK
     Route: 065
  8. CHLORPHENIRAMINE MALEATE [Concomitant]
     Active Substance: CHLORPHENIRAMINE MALEATE
     Indication: Ill-defined disorder
     Dosage: UNK
     Route: 065
  9. CLINDAMYCIN [Concomitant]
     Active Substance: CLINDAMYCIN
     Indication: Ill-defined disorder
     Dosage: UNK
     Route: 065
  10. CYCLOPHOSPHAMIDE [Concomitant]
     Active Substance: CYCLOPHOSPHAMIDE
     Indication: Diffuse large B-cell lymphoma
     Dosage: UNK
     Route: 065
     Dates: start: 20211025
  11. CYTARABINE [Concomitant]
     Active Substance: CYTARABINE
     Indication: Intrathecal injection
     Dosage: UNK
     Route: 037
     Dates: start: 20211021
  12. DOCUSATE [Concomitant]
     Active Substance: DOCUSATE
     Indication: Ill-defined disorder
     Dosage: UNK
     Route: 065
  13. FUROSEMIDE [Concomitant]
     Active Substance: FUROSEMIDE
     Indication: Ill-defined disorder
     Dosage: UNK
     Route: 065
  14. HYDRALAZINE [Concomitant]
     Active Substance: HYDRALAZINE HYDROCHLORIDE
     Indication: Ill-defined disorder
     Dosage: UNK
     Route: 065
  15. HYDROCORTISONE [Concomitant]
     Active Substance: HYDROCORTISONE
     Indication: Intrathecal injection
     Dosage: UNK
     Route: 037
     Dates: start: 20211021
  16. METHOTREXATE [Concomitant]
     Active Substance: METHOTREXATE
     Indication: Intrathecal injection
     Dosage: UNK
     Route: 065
     Dates: start: 20211021
  17. MORPHINE [Concomitant]
     Active Substance: MORPHINE
     Indication: Ill-defined disorder
     Dosage: UNK
     Route: 065
  18. ONDANSETRON [Concomitant]
     Active Substance: ONDANSETRON
     Indication: Ill-defined disorder
     Dosage: UNK
     Route: 065
  19. ACETAMINOPHEN [Concomitant]
     Active Substance: ACETAMINOPHEN
     Indication: Ill-defined disorder
     Dosage: UNK
     Route: 065
  20. PREDNISOLONE [Concomitant]
     Active Substance: PREDNISOLONE
     Indication: Diffuse large B-cell lymphoma
     Dosage: UNK
     Route: 065
     Dates: start: 20211021
  21. RASBURICASE [Concomitant]
     Active Substance: RASBURICASE
     Indication: Ill-defined disorder
     Dosage: UNK
     Route: 065
  22. VINCRISTINE [Concomitant]
     Active Substance: VINCRISTINE
     Indication: Diffuse large B-cell lymphoma
     Dosage: UNK
     Route: 065
     Dates: start: 20211025

REACTIONS (1)
  - Stevens-Johnson syndrome [Recovering/Resolving]

NARRATIVE: CASE EVENT DATE: 20211027
